FAERS Safety Report 9135332 (Version 1)
Quarter: 2013Q1

REPORT INFORMATION
  Report Type: Spontaneous
  Country: US (occurrence: US)
  Receive Date: 20130304
  Receipt Date: 20130304
  Transmission Date: 20140127
  Serious: No
  Sender: FDA-Public Use
  Company Number: US-B.I. PHARMACEUTICALS,INC./RIDGEFIELD-2013-BI-05000BP

PATIENT
  Age: 81 None
  Sex: Male
  Weight: 95 kg

DRUGS (4)
  1. SPIRIVA [Suspect]
     Indication: CHRONIC OBSTRUCTIVE PULMONARY DISEASE
     Dosage: 18 MCG
     Route: 055
     Dates: start: 2005
  2. SPIRIVA [Suspect]
     Route: 048
     Dates: start: 20130221, end: 20130221
  3. PREDNISONE [Concomitant]
     Indication: MYELODYSPLASTIC SYNDROME
  4. GAMMA GLOBULIN [Concomitant]
     Indication: MYELODYSPLASTIC SYNDROME

REACTIONS (2)
  - Idiopathic thrombocytopenic purpura [Not Recovered/Not Resolved]
  - Incorrect route of drug administration [Recovered/Resolved]
